FAERS Safety Report 9608641 (Version 1)
Quarter: 2013Q4

REPORT INFORMATION
  Report Type: Spontaneous
  Country: CA (occurrence: CA)
  Receive Date: 20131009
  Receipt Date: 20131009
  Transmission Date: 20140711
  Serious: Yes (Other)
  Sender: FDA-Public Use
  Company Number: CA-ASTRAZENECA-2013SE73175

PATIENT
  Sex: 0

DRUGS (3)
  1. SYMBICORT TURBUHALER [Suspect]
     Route: 055
  2. ALVESCO [Suspect]
     Route: 065
  3. VENTOLIN [Suspect]
     Route: 065

REACTIONS (2)
  - Asthma [Not Recovered/Not Resolved]
  - Drug ineffective [Not Recovered/Not Resolved]
